FAERS Safety Report 25537382 (Version 1)
Quarter: 2025Q3

REPORT INFORMATION
  Report Type: Spontaneous
  Country: US (occurrence: US)
  Receive Date: 20250710
  Receipt Date: 20250710
  Transmission Date: 20251021
  Serious: Yes (Hospitalization, Other)
  Sender: NOVO NORDISK
  Company Number: US-NOVOPROD-1473184

PATIENT
  Age: 77 Year
  Sex: Female

DRUGS (1)
  1. OZEMPIC [Suspect]
     Active Substance: SEMAGLUTIDE
     Indication: Type 2 diabetes mellitus
     Dosage: 2 MG, QW
     Dates: start: 202502, end: 202504

REACTIONS (4)
  - Brain neoplasm [Recovered/Resolved]
  - Condition aggravated [Recovered/Resolved]
  - Hemiplegia [Not Recovered/Not Resolved]
  - Blood glucose increased [Not Recovered/Not Resolved]
